FAERS Safety Report 4885446-X (Version None)
Quarter: 2005Q4

REPORT INFORMATION
  Report Type: 
  Country: None (occurrence: None)
  Receive Date: 20051220
  Receipt Date: 20051007
  Transmission Date: 20060501
  Serious: Yes (Disabling)
  Sender: FDA-Public Use
  Company Number: HQWYE973812OCT05

PATIENT
  Sex: Female

DRUGS (5)
  1. EFFEXOR XR [Suspect]
     Dosage: 150 MG 3X PER 1 DAY
  2. RANITIDINE [Concomitant]
  3. LOVASTATIN [Concomitant]
  4. ABILIFY [Concomitant]
  5. TEGRETOL [Concomitant]

REACTIONS (3)
  - APATHY [None]
  - ASTHENIA [None]
  - INSOMNIA [None]
